FAERS Safety Report 4271616-0 (Version None)
Quarter: 2004Q1

REPORT INFORMATION
  Report Type: 
  Country: None (occurrence: None)
  Receive Date: 20040113
  Receipt Date: 20000510
  Transmission Date: 20041129
  Serious: Yes (Disabling)
  Sender: FDA-Public Use
  Company Number: 7027

PATIENT
  Age: 45 Year
  Sex: Male

DRUGS (2)
  1. DOXYCYCLINE [Suspect]
     Indication: LOWER RESPIRATORY TRACT INFECTION
     Dosage: 200 MG ONCE/100 MG
     Route: 048
     Dates: start: 19991116, end: 19991116
  2. DOXYCYCLINE [Suspect]
     Indication: LOWER RESPIRATORY TRACT INFECTION
     Dosage: 200 MG ONCE/100 MG
     Route: 048
     Dates: start: 19991116, end: 19991122

REACTIONS (2)
  - AGEUSIA [None]
  - ANOSMIA [None]
